FAERS Safety Report 9942558 (Version 1)
Quarter: 2014Q1

REPORT INFORMATION
  Report Type: Report from Study
  Country: US (occurrence: US)
  Receive Date: 20140303
  Receipt Date: 20140303
  Transmission Date: 20141002
  Serious: No
  Sender: FDA-Public Use
  Company Number: US-ABBVIE-13P-163-1046356-00

PATIENT
  Age: 73 Year
  Sex: Female

DRUGS (18)
  1. HUMIRA [Suspect]
     Indication: RHEUMATOID ARTHRITIS
  2. HUMIRA [Suspect]
  3. ALENDRONATE SODIUM [Concomitant]
     Indication: OSTEOPOROSIS
     Dosage: 40 MG WEEKLY
  4. GLIPIZIDE [Concomitant]
     Indication: DIABETES MELLITUS
     Dosage: IF NEEDED
  5. AMIODARONE HCL [Concomitant]
     Indication: ATRIAL FIBRILLATION
     Dosage: 200MG ONE DAY AND THE NEXT DAY 100 MG (ALTERNATES)
  6. METFORMIN [Concomitant]
     Indication: DIABETES MELLITUS
  7. MULTIVITAMIN [Concomitant]
     Indication: PRODUCT USED FOR UNKNOWN INDICATION
  8. VITAMIN D3 [Concomitant]
     Indication: PRODUCT USED FOR UNKNOWN INDICATION
  9. ACTOSE [Concomitant]
     Indication: DIABETES MELLITUS
     Dosage: EACH MORNING
  10. COLORYS [Concomitant]
     Indication: CHONDROCALCINOSIS PYROPHOSPHATE
  11. PRADAXA [Concomitant]
     Indication: ANTICOAGULANT THERAPY
  12. METOPROLOL [Concomitant]
     Indication: BLOOD PRESSURE
  13. LISINOPRIL [Concomitant]
     Indication: BLOOD PRESSURE
  14. FENOFIBRATE [Concomitant]
     Indication: PRODUCT USED FOR UNKNOWN INDICATION
     Dosage: 54 MG DAILY
  15. LEVOTHYROXINE [Concomitant]
     Indication: HYPOTHYROIDISM
  16. SODIUM CHLORIDE [Concomitant]
     Indication: BLOOD SODIUM DECREASED
  17. HYDROCODONE [Concomitant]
     Indication: PAIN
  18. ACETAMINOPHEN [Concomitant]
     Indication: PAIN

REACTIONS (4)
  - Pain [Recovered/Resolved]
  - Nasopharyngitis [Recovered/Resolved]
  - Oropharyngeal pain [Recovered/Resolved]
  - Malaise [Recovered/Resolved]
